FAERS Safety Report 14551157 (Version 1)
Quarter: 2018Q1

REPORT INFORMATION
  Report Type: Spontaneous
  Country: US (occurrence: US)
  Receive Date: 20180220
  Receipt Date: 20180220
  Transmission Date: 20180509
  Serious: No
  Sender: FDA-Public Use
  Company Number: US-009507513-1802USA006984

PATIENT
  Sex: Male

DRUGS (1)
  1. NASONEX [Suspect]
     Active Substance: MOMETASONE FUROATE
     Indication: HYPERSENSITIVITY
     Dosage: DOSE 1-2 SPRAYS, QD (EACH DAY) AS NEEDED
     Route: 055

REACTIONS (2)
  - Incorrect dose administered [Unknown]
  - No adverse event [Unknown]
